FAERS Safety Report 18249848 (Version 1)
Quarter: 2020Q3

REPORT INFORMATION
  Report Type: Spontaneous
  Country: AT (occurrence: AT)
  Receive Date: 20200910
  Receipt Date: 20200910
  Transmission Date: 20201103
  Serious: Yes (Other)
  Sender: FDA-Public Use
  Company Number: NVSC2020AT243991

PATIENT
  Age: 21 Year
  Sex: Female

DRUGS (2)
  1. EUTHYROX [Concomitant]
     Active Substance: LEVOTHYROXINE SODIUM
     Indication: PRODUCT USED FOR UNKNOWN INDICATION
     Dosage: UNK
     Route: 065
  2. CLAVAMOX 875 MG/125 MG ? FILMTABLETTEN [Suspect]
     Active Substance: AMOXICILLIN\CLAVULANATE POTASSIUM
     Indication: PRODUCT USED FOR UNKNOWN INDICATION
     Dosage: GEMAB FACHINFORMATION
     Route: 065
     Dates: start: 20200203, end: 20200203

REACTIONS (5)
  - Type I hypersensitivity [Recovered/Resolved]
  - Dyspnoea [Recovered/Resolved]
  - Vomiting [Recovered/Resolved]
  - Nausea [Recovered/Resolved]
  - Rash macular [Recovered/Resolved]
